FAERS Safety Report 5271901-X (Version None)
Quarter: 2007Q1

REPORT INFORMATION
  Report Type: 
  Country: None (occurrence: None)
  Receive Date: 20070316
  Receipt Date: 20070305
  Transmission Date: 20070707
  Serious: Yes (Hospitalization)
  Sender: FDA-Public Use
  Company Number: S07-FRA-01100-02

PATIENT
  Age: 1 Day
  Sex: Male
  Weight: 3.57 kg

DRUGS (3)
  1. SEROPLEX (ESCITALOPRAM) [Suspect]
     Indication: OBSESSIVE-COMPULSIVE DISORDER
     Dosage: 10 MG QD TRANSPLACENTAL
     Route: 064
  2. SEROPLEX (ESCITALOPRAM) [Suspect]
     Indication: OBSESSIVE-COMPULSIVE DISORDER
     Dosage: 5 MG TRANSPLACENTAL
     Route: 064
     Dates: end: 20070207
  3. NICOTINE [Concomitant]

REACTIONS (10)
  - C-REACTIVE PROTEIN INCREASED [None]
  - CONVULSION NEONATAL [None]
  - CYANOSIS NEONATAL [None]
  - DRUG EXPOSURE DURING PREGNANCY [None]
  - DRUG WITHDRAWAL SYNDROME NEONATAL [None]
  - HYPOCALCAEMIA [None]
  - NEONATAL DISORDER [None]
  - NEONATAL RESPIRATORY DISTRESS SYNDROME [None]
  - TREMOR NEONATAL [None]
  - WHITE BLOOD CELL COUNT DECREASED [None]
